FAERS Safety Report 8484395-8 (Version None)
Quarter: 2012Q3

REPORT INFORMATION
  Report Type: 
  Country: None (occurrence: None)
  Receive Date: 20120703
  Receipt Date: 20120621
  Transmission Date: 20120928
  Serious: Yes (Other)
  Sender: FDA-Public Use
  Company Number: US-COVIDIEN/TYCO HEALTHCARE/MALLINCKRODT-T201202613

PATIENT
  Age: 40 Week
  Weight: 3.7 kg

DRUGS (2)
  1. FENTANYL CITRATE [Suspect]
     Indication: PERIOPERATIVE ANALGESIA
     Dosage: TOTAL 5.4 (2 ?G/KG BODY WEIGHT/HR)
     Route: 042
  2. FENTANYL CITRATE [Suspect]
     Indication: SEDATION

REACTIONS (1)
  - MUSCLE RIGIDITY [None]
